FAERS Safety Report 10203454 (Version 1)
Quarter: 2014Q2

REPORT INFORMATION
  Report Type: Report from Study
  Country: CN (occurrence: None)
  Receive Date: 20140523
  Receipt Date: 20140523
  Transmission Date: 20141212
  Serious: Yes (Other)
  Sender: FDA-Public Use
  Company Number: VAL_03148_2014

PATIENT
  Age: 74 Year
  Sex: Female

DRUGS (3)
  1. ROCALTROL [Suspect]
     Indication: OSTEOPOROSIS
     Route: 048
     Dates: end: 2011
  2. CALCIUM WITH VITAMIN D [Concomitant]
  3. ACLASTA [Concomitant]

REACTIONS (4)
  - Ankle fracture [None]
  - Wrist fracture [None]
  - Splenic calcification [None]
  - Lumbar vertebral fracture [None]
